FAERS Safety Report 8567562-4 (Version None)
Quarter: 2012Q3

REPORT INFORMATION
  Report Type: 
  Country: None (occurrence: None)
  Receive Date: 20120803
  Receipt Date: 20110915
  Transmission Date: 20120928
  Serious: No
  Sender: FDA-Public Use
  Company Number: US-ABBOTT-11P-163-0855559-00

PATIENT
  Sex: Male
  Weight: 77.18 kg

DRUGS (4)
  1. GABAPENTIN [Concomitant]
     Indication: NEUROPATHY PERIPHERAL
  2. PREDNISONE [Concomitant]
     Indication: PRODUCT USED FOR UNKNOWN INDICATION
  3. ASPIRIN [Concomitant]
     Indication: PRODUCT USED FOR UNKNOWN INDICATION
  4. NIASPAN [Suspect]
     Indication: BLOOD CHOLESTEROL

REACTIONS (1)
  - FLUSHING [None]
